FAERS Safety Report 8590573-X (Version None)
Quarter: 2012Q3

REPORT INFORMATION
  Report Type: 
  Country: None (occurrence: None)
  Receive Date: 20120813
  Receipt Date: 20120803
  Transmission Date: 20120928
  Serious: No
  Sender: FDA-Public Use
  Company Number: US-ASTRAZENECA-2011SE34892

PATIENT
  Age: 63 Year
  Sex: Female

DRUGS (13)
  1. NEXIUM [Suspect]
     Route: 048
  2. ALBUTEROL [Concomitant]
  3. IBUPROFEN [Concomitant]
  4. UNSPECIFIED STEROIDS [Concomitant]
  5. FLUTICASONE PROPIONATE [Concomitant]
  6. FLEXERIL [Concomitant]
  7. SPIRIVA [Concomitant]
  8. ACYCLOVIR [Concomitant]
  9. LOSARTAN POTASSIUM [Concomitant]
  10. FLUTICASONE PROPIONATE [Concomitant]
  11. SINGULAIR [Concomitant]
  12. DIPHENHYDRAMINE HYDROCHLORIDE [Concomitant]
  13. PROVEXTAL [Concomitant]

REACTIONS (6)
  - CHRONIC OBSTRUCTIVE PULMONARY DISEASE [None]
  - ASTHMA [None]
  - INTENTIONAL DRUG MISUSE [None]
  - DRUG DOSE OMISSION [None]
  - DYSPHONIA [None]
  - SINUSITIS [None]
